FAERS Safety Report 5783941-2 (Version None)
Quarter: 2008Q2

REPORT INFORMATION
  Report Type: 
  Country: None (occurrence: None)
  Receive Date: 20080605
  Receipt Date: 20080327
  Transmission Date: 20081010
  Serious: No
  Sender: FDA-Public Use
  Company Number: A0717744A

PATIENT
  Age: 28 Year
  Sex: Female
  Weight: 65 kg

DRUGS (1)
  1. ALLI [Suspect]
     Dates: start: 20080102, end: 20080131

REACTIONS (4)
  - ABDOMINAL PAIN LOWER [None]
  - CHEST PAIN [None]
  - CHOLELITHIASIS [None]
  - DIZZINESS [None]
